FAERS Safety Report 9362980 (Version 12)
Quarter: 2014Q2

REPORT INFORMATION
  Report Type: Report from Study
  Country: CA (occurrence: CA)
  Receive Date: 20130624
  Receipt Date: 20140508
  Transmission Date: 20141212
  Serious: Yes (Hospitalization, Other)
  Sender: FDA-Public Use
  Company Number: CA-ROCHE-1184094

PATIENT
  Age: 74 Year
  Sex: Female
  Weight: 55.4 kg

DRUGS (13)
  1. ACTEMRA [Suspect]
     Indication: RHEUMATOID ARTHRITIS
     Route: 042
     Dates: start: 20130123, end: 20140428
  2. ACTEMRA [Suspect]
     Route: 065
     Dates: start: 20130619
  3. HYDROCHLOROTHIAZIDE + TRIAMTERENE [Suspect]
     Indication: HYPERTENSION
     Route: 065
  4. PANTOLOC [Concomitant]
  5. METHOTREXATE [Concomitant]
  6. COVERSYL [Concomitant]
     Route: 065
  7. TYLENOL [Concomitant]
     Dosage: ONE TAB PER DAY
     Route: 065
  8. PERCOCET [Concomitant]
     Dosage: AS NEEDED
     Route: 065
  9. VITAMIN B12 [Concomitant]
  10. VITAMIN C [Concomitant]
  11. CORTISONE [Concomitant]
     Dosage: SHOTS
     Route: 065
  12. CORTISONE [Concomitant]
  13. HUMIRA [Concomitant]
     Dosage: HUMIRA: LAST DOSE 06/DEC/2012?NEXT DOSE DUE 06/DEC/2012
     Route: 065

REACTIONS (25)
  - Rectal haemorrhage [Recovered/Resolved]
  - Hypotension [Recovering/Resolving]
  - Arthralgia [Recovering/Resolving]
  - Local swelling [Unknown]
  - Pain in extremity [Recovering/Resolving]
  - Pain [Not Recovered/Not Resolved]
  - Blood pressure increased [Not Recovered/Not Resolved]
  - Haemoglobin decreased [Unknown]
  - Constipation [Recovered/Resolved]
  - Blood pressure fluctuation [Unknown]
  - Abdominal pain [Recovered/Resolved]
  - Abdominal distension [Recovered/Resolved]
  - Flatulence [Recovered/Resolved]
  - Diarrhoea [Recovered/Resolved]
  - Gait disturbance [Not Recovered/Not Resolved]
  - Therapeutic response decreased [Unknown]
  - Erythema [Recovered/Resolved]
  - Eye irritation [Recovering/Resolving]
  - Cough [Recovering/Resolving]
  - Rhinorrhoea [Not Recovered/Not Resolved]
  - Nasopharyngitis [Not Recovered/Not Resolved]
  - Nasal congestion [Unknown]
  - Drug ineffective [Unknown]
  - Limb discomfort [Unknown]
  - Arthralgia [Unknown]
